FAERS Safety Report 5623885-X (Version None)
Quarter: 2008Q1

REPORT INFORMATION
  Report Type: 
  Country: None (occurrence: None)
  Receive Date: 20080207
  Receipt Date: 20080128
  Transmission Date: 20080703
  Serious: Yes (Other)
  Sender: FDA-Public Use
  Company Number: GXKR2007GB09421

PATIENT
  Age: 64 Year
  Sex: Male

DRUGS (10)
  1. CO-AMOXICLAV (NGX)AMOXICILLIN, CLAVULANATE) UNKNOWN [Suspect]
     Indication: WOUND INFECTION
     Dosage: ORAL
     Route: 048
     Dates: start: 20070726, end: 20070802
  2. METRONIDAZOLE [Suspect]
     Indication: WOUND INFECTION
     Dosage: 400 MG, TID; ORAL
     Route: 048
     Dates: start: 20070726, end: 20070802
  3. ALLOPURINOL [Concomitant]
  4. CORACTEN (NIFEDIPINE) [Concomitant]
  5. DIGOXIN [Concomitant]
  6. GAVISCON [Concomitant]
  7. IRBESARTAN [Concomitant]
  8. ACETAMINOPHEN [Concomitant]
  9. SIMVASTATIN [Concomitant]
  10. WARFARIN SODIUM [Concomitant]

REACTIONS (2)
  - HEPATITIS [None]
  - MALAISE [None]
